FAERS Safety Report 15906021 (Version 1)
Quarter: 2019Q1

REPORT INFORMATION
  Report Type: Spontaneous
  Country: US (occurrence: US)
  Receive Date: 20190111
  Receipt Date: 20190111
  Transmission Date: 20190417
  Serious: Yes (Life-Threatening, Disabling, Other)
  Sender: FDA-Public Use
  Company Number: None

PATIENT
  Age: 60 Year
  Sex: Male
  Weight: 77.11 kg

DRUGS (11)
  1. FENTANYL. [Concomitant]
     Active Substance: FENTANYL
  2. SENNA LAXATIVE [Concomitant]
     Active Substance: SENNOSIDES
  3. VITAMIN D [Concomitant]
     Active Substance: CHOLECALCIFEROL
  4. TUMARIC [Concomitant]
  5. QUETIAPINE. [Suspect]
     Active Substance: QUETIAPINE
     Indication: SLEEP DISORDER
     Dosage: ?          QUANTITY:60 TABLETS FREQUENCY:1-2 AT BEDTIME;?
     Route: 048
     Dates: end: 20190103
  6. FISH OIL [Concomitant]
     Active Substance: FISH OIL
  7. MELATIONIN [Concomitant]
  8. DIPHENHYDRAMINE. [Concomitant]
     Active Substance: DIPHENHYDRAMINE
  9. VITAMIN E [Concomitant]
     Active Substance: .ALPHA.-TOCOPHEROL
  10. VITAMIN C [Concomitant]
     Active Substance: ASCORBIC ACID
  11. QUETIAPINE. [Suspect]
     Active Substance: QUETIAPINE
     Indication: TACHYPHRENIA
     Dosage: ?          QUANTITY:60 TABLETS FREQUENCY:1-2 AT BEDTIME;?
     Route: 048
     Dates: end: 20190103

REACTIONS (4)
  - Anxiety [None]
  - Impaired driving ability [None]
  - Insomnia [None]
  - Dry mouth [None]

NARRATIVE: CASE EVENT DATE: 20181210
